FAERS Safety Report 5004102-0 (Version None)
Quarter: 2006Q2

REPORT INFORMATION
  Report Type: 
  Country: None (occurrence: None)
  Receive Date: 20060517
  Receipt Date: 20060309
  Transmission Date: 20061013
  Serious: Yes (Death)
  Sender: FDA-Public Use
  Company Number: US-AVENTIS-200612260US

PATIENT
  Age: 88 Year
  Sex: Female

DRUGS (9)
  1. ANZEMET [Suspect]
     Indication: POST PROCEDURAL NAUSEA
     Route: 041
     Dates: start: 20060208, end: 20060208
  2. ANZEMET [Suspect]
     Indication: POST PROCEDURAL VOMITING
     Route: 041
     Dates: start: 20060208, end: 20060208
  3. LANOXIN [Concomitant]
  4. LASIX [Concomitant]
  5. K-DUR 10 [Concomitant]
  6. HYZAAR [Concomitant]
     Dosage: DOSE: 50/12.5
  7. LOVENOX [Concomitant]
  8. OS-CAL 500+D [Concomitant]
  9. FOSAMAX [Concomitant]

REACTIONS (5)
  - ACCIDENTAL OVERDOSE [None]
  - CARDIO-RESPIRATORY ARREST [None]
  - DRUG PRESCRIBING ERROR [None]
  - HYPOTENSION [None]
  - LOSS OF CONSCIOUSNESS [None]
